FAERS Safety Report 23296821 (Version 1)
Quarter: 2023Q4

REPORT INFORMATION
  Report Type: Report from Study
  Country: US (occurrence: US)
  Receive Date: 20231214
  Receipt Date: 20231214
  Transmission Date: 20240110
  Serious: Yes (Hospitalization, Other)
  Sender: FDA-Public Use
  Company Number: US-INSMED-2023-00884-USAA

PATIENT
  Sex: Female

DRUGS (4)
  1. ARIKAYCE [Suspect]
     Active Substance: AMIKACIN
     Indication: Mycobacterium avium complex infection
     Dosage: 590 MILLIGRAM, QD
     Route: 055
     Dates: start: 20230308, end: 2023
  2. ARIKAYCE [Suspect]
     Active Substance: AMIKACIN
     Dosage: 590 MILLIGRAM, DOES NOT NEBULIZE EVERY DAY (ONLY DOSING EVERY TWO OR THREE DAYS)
     Route: 055
     Dates: start: 2023, end: 2023
  3. ARIKAYCE [Suspect]
     Active Substance: AMIKACIN
     Dosage: 590 MILLIGRAM, TIW
     Route: 055
     Dates: start: 2023, end: 202311
  4. ARIKAYCE [Suspect]
     Active Substance: AMIKACIN
     Dosage: 590 MILLIGRAM, TIW
     Route: 055
     Dates: start: 2023

REACTIONS (17)
  - Oesophageal rupture [Unknown]
  - Hospitalisation [Unknown]
  - Laryngeal ulceration [Unknown]
  - Secretion discharge [Not Recovered/Not Resolved]
  - COVID-19 [Not Recovered/Not Resolved]
  - Drug intolerance [Unknown]
  - Insomnia [Not Recovered/Not Resolved]
  - Throat irritation [Not Recovered/Not Resolved]
  - Cough [Not Recovered/Not Resolved]
  - Dysphonia [Not Recovered/Not Resolved]
  - Haemoptysis [Recovered/Resolved]
  - Dyspnoea [Recovering/Resolving]
  - Product dose omission issue [Unknown]
  - Intentional product misuse [Unknown]
  - Intentional dose omission [Unknown]
  - Off label use [Unknown]
  - Therapy interrupted [Unknown]

NARRATIVE: CASE EVENT DATE: 20230101
